FAERS Safety Report 21572503 (Version 1)
Quarter: 2022Q4

REPORT INFORMATION
  Report Type: Spontaneous
  Country: RO (occurrence: RO)
  Receive Date: 20221109
  Receipt Date: 20221109
  Transmission Date: 20230113
  Serious: Yes (Other)
  Sender: FDA-Public Use
  Company Number: RO-ROCHE-3206271

PATIENT
  Age: 65 Year
  Sex: Female
  Weight: 55 kg

DRUGS (7)
  1. CARBOPLATIN [Suspect]
     Active Substance: CARBOPLATIN
     Indication: HER2 positive breast cancer
     Dosage: MOST RECENT DOSE PRIOR TO AE 24/APR/2019, SINGLE 1 WEEKS?UNIT DOSE - 280MG?ROA-20045000
     Route: 042
     Dates: start: 20190306
  2. PACLITAXEL [Suspect]
     Active Substance: PACLITAXEL
     Indication: HER2 positive breast cancer
     Dosage: MOST RECENT DOSE PRIOR TO AE 28/AUG/2020, SINGLE 2 WEEKS?UNIT DOSE - 80MG/M2?ROA-20045000
     Route: 042
     Dates: start: 20180306
  3. LAPATINIB [Suspect]
     Active Substance: LAPATINIB
     Indication: HER2 positive breast cancer
     Dosage: MOST RECENT DOSE PRIOR TO AE 04/JUL/2022, SINGLE 2 WEEKS?UNIT DOSE - 1250MG/KG?ROA-20053000
     Route: 048
  4. ADO-TRASTUZUMAB EMTANSINE [Suspect]
     Active Substance: ADO-TRASTUZUMAB EMTANSINE
     Indication: HER2 positive breast cancer
     Dosage: UNIT DOSE - 3.6MG/M2?ROA-20045000
     Route: 042
     Dates: start: 20200921, end: 20220517
  5. CAPECITABINE [Suspect]
     Active Substance: CAPECITABINE
     Indication: HER2 positive breast cancer
     Dosage: MOST RECENT DOSE PRIOR TO AE 4/JUL/2022, SINGLE 3 WEEKS?UNIT DOSE - 2000MG/KG?ROA-20053000
     Route: 048
  6. TRASTUZUMAB [Suspect]
     Active Substance: TRASTUZUMAB
     Indication: HER2 positive breast cancer
     Dosage: MOST RECENT DOSE PRIOR TO AE 28/AUG/2020, IV DRIP, SINGLE 3 WEEKS?UNIT DOSE - 8MG/KG
     Route: 041
     Dates: start: 20180306
  7. LETROZOLE [Suspect]
     Active Substance: LETROZOLE
     Indication: HER2 positive breast cancer
     Dosage: SINGLE 1 DAYS?UNIT DOSE - 2.5MG?ROA-20053000
     Route: 048
     Dates: start: 20210712

REACTIONS (1)
  - Hepatic cytolysis [Not Recovered/Not Resolved]

NARRATIVE: CASE EVENT DATE: 20220321
